FAERS Safety Report 21783164 (Version 1)
Quarter: 2022Q4

REPORT INFORMATION
  Report Type: Spontaneous
  Country: US (occurrence: None)
  Receive Date: 20221224
  Receipt Date: 20221224
  Transmission Date: 20230113
  Serious: Yes (Death)
  Sender: FDA-Public Use
  Company Number: None

PATIENT
  Age: 43 Year
  Sex: Female

DRUGS (3)
  1. VORTIOXETINE [Suspect]
     Active Substance: VORTIOXETINE
     Indication: Generalised anxiety disorder
     Dosage: FREQUENCY : DAILY;?
     Route: 048
     Dates: start: 20221219, end: 20221223
  2. Duloxetine 30 mg daily [Concomitant]
     Dates: start: 20221215, end: 20221218
  3. Venlafaxine ER 37.5 mg daily [Concomitant]
     Dates: start: 20221207, end: 20221214

REACTIONS (1)
  - Death [None]

NARRATIVE: CASE EVENT DATE: 20221223
